FAERS Safety Report 16886501 (Version 1)
Quarter: 2019Q4

REPORT INFORMATION
  Report Type: Spontaneous
  Country: CA (occurrence: CA)
  Receive Date: 20191004
  Receipt Date: 20191004
  Transmission Date: 20200122
  Serious: Yes (Death)
  Sender: FDA-Public Use
  Company Number: CA-TEVA-2019-CA-1115507

PATIENT
  Age: 83 Year
  Sex: Female
  Weight: 55 kg

DRUGS (25)
  1. ACETAMINOPHEN. [Concomitant]
     Active Substance: ACETAMINOPHEN
  2. ACTONEL [Concomitant]
     Active Substance: RISEDRONATE SODIUM
  3. DIPHENHYDRAMINE. [Concomitant]
     Active Substance: DIPHENHYDRAMINE
  4. DOMPERIDONE [Concomitant]
     Active Substance: DOMPERIDONE
  5. RAMIPRIL. [Concomitant]
     Active Substance: RAMIPRIL
  6. ESOMEPRAZOLE. [Suspect]
     Active Substance: ESOMEPRAZOLE MAGNESIUM
     Indication: GASTROOESOPHAGEAL REFLUX DISEASE
     Dosage: 20 MILLIGRAM DAILY;
     Route: 065
  7. MACROBID [Suspect]
     Active Substance: NITROFURANTOIN\NITROFURANTOIN MONOHYDRATE
     Indication: CYSTITIS
     Route: 065
  8. CIPROFLOXACIN. [Concomitant]
     Active Substance: CIPROFLOXACIN
  9. METHYLPREDNISOLONE NOS [Concomitant]
     Active Substance: METHYLPREDNISOLONE
  10. SPIRONOLACTONE. [Concomitant]
     Active Substance: SPIRONOLACTONE
  11. TRIMETHOPRIM. [Concomitant]
     Active Substance: TRIMETHOPRIM
  12. RITUXAN [Suspect]
     Active Substance: RITUXIMAB
     Indication: RHEUMATOID ARTHRITIS
     Route: 042
  13. PLAQUENIL [Concomitant]
     Active Substance: HYDROXYCHLOROQUINE SULFATE
  14. CRANBERRY. [Concomitant]
     Active Substance: CRANBERRY
  15. PREDNISONE. [Concomitant]
     Active Substance: PREDNISONE
  16. LASIX [Concomitant]
     Active Substance: FUROSEMIDE
  17. ACETAMINOPHEN. [Concomitant]
     Active Substance: ACETAMINOPHEN
  18. PANTOLOC /01263204/ [Concomitant]
     Active Substance: PANTOPRAZOLE SODIUM
  19. SULFATRIM [Concomitant]
     Active Substance: SULFAMETHOXAZOLE\TRIMETHOPRIM
  20. VITAMIN C [Concomitant]
     Active Substance: ASCORBIC ACID
  21. CLOPIDOGREL [Concomitant]
     Active Substance: CLOPIDOGREL BISULFATE
  22. HYDROCHLOROQUINE [Concomitant]
     Active Substance: HYDROXYCHLOROQUINE SULFATE
  23. BISOPROLOL [Suspect]
     Active Substance: BISOPROLOL
     Indication: CARDIAC DISORDER
     Route: 048
  24. ENBREL [Concomitant]
     Active Substance: ETANERCEPT
  25. RISEDRONATE SODIUM. [Concomitant]
     Active Substance: RISEDRONATE SODIUM

REACTIONS (29)
  - Arthralgia [Fatal]
  - Fluid retention [Fatal]
  - Abdominal pain [Fatal]
  - C-reactive protein increased [Fatal]
  - Fall [Fatal]
  - Heart rate increased [Fatal]
  - Inflammation [Fatal]
  - Interstitial lung disease [Fatal]
  - Oxygen saturation decreased [Fatal]
  - Weight decreased [Fatal]
  - Chest injury [Fatal]
  - Nausea [Fatal]
  - Pain [Fatal]
  - Gastroenteritis viral [Fatal]
  - Joint swelling [Fatal]
  - Cystitis [Fatal]
  - Dyspnoea [Fatal]
  - Pneumonia [Fatal]
  - Respiratory rate increased [Fatal]
  - Swelling [Fatal]
  - Decreased appetite [Fatal]
  - Gastrooesophageal reflux disease [Fatal]
  - Drug hypersensitivity [Fatal]
  - Urinary tract infection [Fatal]
  - Cardiac disorder [Fatal]
  - Dyspnoea exertional [Fatal]
  - Musculoskeletal stiffness [Fatal]
  - Syncope [Fatal]
  - Vomiting [Fatal]
